FAERS Safety Report 5223597-0 (Version None)
Quarter: 2007Q1

REPORT INFORMATION
  Report Type: 
  Country: None (occurrence: None)
  Receive Date: 20070125
  Receipt Date: 20070117
  Transmission Date: 20070707
  Serious: Yes (Other)
  Sender: FDA-Public Use
  Company Number: 2007SP000930

PATIENT
  Sex: Male

DRUGS (1)
  1. TEMODAL [Suspect]
     Indication: DRUG USE FOR UNKNOWN INDICATION
     Dosage: PO
     Route: 048

REACTIONS (1)
  - DEEP VEIN THROMBOSIS [None]
